FAERS Safety Report 25768656 (Version 1)
Quarter: 2025Q3

REPORT INFORMATION
  Report Type: Spontaneous
  Country: CN (occurrence: CN)
  Receive Date: 20250905
  Receipt Date: 20250905
  Transmission Date: 20251020
  Serious: Yes (Hospitalization, Other)
  Sender: MERCK SHARP & DOHME LLC
  Company Number: CN-009507513-2324703

PATIENT
  Age: 73 Year
  Sex: Female

DRUGS (3)
  1. PEMBROLIZUMAB [Suspect]
     Active Substance: PEMBROLIZUMAB
     Indication: Metastatic gastric cancer
     Dosage: 200 MG, EVERY 3 WEEKS, D1
     Route: 041
     Dates: start: 20250506, end: 20250730
  2. OXALIPLATIN [Concomitant]
     Active Substance: OXALIPLATIN
     Indication: Metastatic gastric cancer
     Dosage: 180 MG, D1, EVERY 3 WEEKS (ALSO REPORTED AS QD)
     Route: 041
     Dates: start: 20250506, end: 20250730
  3. CAPECITABINE [Concomitant]
     Active Substance: CAPECITABINE
     Indication: Metastatic gastric cancer
     Route: 041
     Dates: start: 20250506, end: 20250812

REACTIONS (9)
  - Renal tubular injury [Unknown]
  - Alkalinuria [Unknown]
  - Protein urine present [Unknown]
  - Hypokalaemia [Unknown]
  - Hypophosphataemia [Unknown]
  - White blood cells urine positive [Unknown]
  - Hypouricaemia [Unknown]
  - Blood creatinine increased [Recovering/Resolving]
  - Expired product administered [Unknown]

NARRATIVE: CASE EVENT DATE: 20250506
